FAERS Safety Report 5839059-3 (Version None)
Quarter: 2008Q3

REPORT INFORMATION
  Report Type: 
  Country: None (occurrence: None)
  Receive Date: 20080808
  Receipt Date: 20080730
  Transmission Date: 20090109
  Serious: Yes (Hospitalization)
  Sender: FDA-Public Use
  Company Number: US-ABBOTT-08P-163-0468604-00

PATIENT
  Sex: Female
  Weight: 72.64 kg

DRUGS (10)
  1. HUMIRA [Suspect]
     Indication: RHEUMATOID ARTHRITIS
     Dates: start: 20070814, end: 20071013
  2. VITAMIN TAB [Concomitant]
     Indication: DRUG USE FOR UNKNOWN INDICATION
     Route: 048
     Dates: start: 20070916
  3. CAFFEINE [Concomitant]
     Indication: DRUG USE FOR UNKNOWN INDICATION
     Route: 048
     Dates: start: 20070814, end: 20071001
  4. LEVOTHYROXINE SODIUM [Concomitant]
     Indication: DRUG USE FOR UNKNOWN INDICATION
     Route: 048
     Dates: start: 20070814, end: 20070911
  5. ACETAMINOPHEN [Concomitant]
     Indication: RHEUMATOID ARTHRITIS
     Route: 048
     Dates: start: 20070814
  6. ONDANSETRON [Concomitant]
     Indication: DRUG USE FOR UNKNOWN INDICATION
     Route: 048
     Dates: start: 20080104, end: 20080104
  7. ONDANSETRON [Concomitant]
     Route: 042
     Dates: start: 20071212, end: 20071213
  8. ESOMEPRAZOLE MAGNESIUM [Concomitant]
     Indication: GASTROOESOPHAGEAL REFLUX DISEASE
     Route: 048
     Dates: start: 20080321
  9. GLICLAZIDE [Concomitant]
     Indication: SEASONAL ALLERGY
     Route: 048
     Dates: start: 20071225, end: 20080108
  10. GLICLAZIDE [Concomitant]
     Route: 048
     Dates: start: 20080326, end: 20080330

REACTIONS (1)
  - PANCREATITIS [None]
